FAERS Safety Report 6273219-5 (Version None)
Quarter: 2009Q3

REPORT INFORMATION
  Report Type: 
  Country: None (occurrence: None)
  Receive Date: 20090720
  Receipt Date: 20090708
  Transmission Date: 20100115
  Serious: Yes (Other)
  Sender: FDA-Public Use
  Company Number: US-TEVA-200374USA

PATIENT

DRUGS (1)
  1. PROPOFOL [Suspect]
     Indication: COLONOSCOPY
     Route: 042
     Dates: start: 20090622, end: 20090622

REACTIONS (5)
  - CHILLS [None]
  - INFLUENZA LIKE ILLNESS [None]
  - PAIN [None]
  - PRODUCT CONTAMINATION MICROBIAL [None]
  - PYREXIA [None]
